FAERS Safety Report 5378513-8 (Version None)
Quarter: 2007Q3

REPORT INFORMATION
  Report Type: 
  Country: None (occurrence: None)
  Receive Date: 20070705
  Receipt Date: 20070625
  Transmission Date: 20080115
  Serious: Yes (Hospitalization, Other)
  Sender: FDA-Public Use
  Company Number: US-KINGPHARMUSA00001-K200700625

PATIENT

DRUGS (7)
  1. ALTACE [Suspect]
     Indication: HYPERTENSION
     Dosage: 2.5 MG, QD
     Route: 048
     Dates: start: 20041001, end: 20050501
  2. ALTACE [Suspect]
     Dosage: 5 MG, QD
     Route: 048
     Dates: start: 20050430, end: 20070112
  3. SINTROM [Concomitant]
     Dosage: 3 MG, QD
  4. LIPANOR [Concomitant]
     Dosage: 100 DF, UNK
  5. DIGOXIN [Concomitant]
     Dosage: .25 MG, QD
  6. AMLODIPINE [Concomitant]
     Dosage: 5 MG, QD
  7. JOSIR [Concomitant]
     Dosage: .4 MG, QD

REACTIONS (2)
  - CHRONIC MYELOMONOCYTIC LEUKAEMIA [None]
  - SIDEROBLASTIC ANAEMIA [None]
